FAERS Safety Report 18989442 (Version 10)
Quarter: 2021Q3

REPORT INFORMATION
  Report Type: Report from Study
  Country: FR (occurrence: FR)
  Receive Date: 20210309
  Receipt Date: 20210921
  Transmission Date: 20211014
  Serious: Yes (Hospitalization)
  Sender: FDA-Public Use
  Company Number: FR-EISAI MEDICAL RESEARCH-EC-2021-089064

PATIENT
  Age: 56 Year
  Sex: Male
  Weight: 71.3 kg

DRUGS (12)
  1. LENVATINIB [Suspect]
     Active Substance: LENVATINIB
     Indication: MALIGNANT MELANOMA
     Route: 048
     Dates: start: 20200904, end: 20210401
  2. LENVATINIB [Suspect]
     Active Substance: LENVATINIB
     Route: 048
     Dates: start: 20210409
  3. PEMBROLIZUMAB. [Suspect]
     Active Substance: PEMBROLIZUMAB
     Indication: MALIGNANT MELANOMA
     Route: 041
     Dates: start: 20200904, end: 20210108
  4. PEMBROLIZUMAB. [Suspect]
     Active Substance: PEMBROLIZUMAB
     Route: 041
     Dates: start: 20210514
  5. PEMBROLIZUMAB. [Suspect]
     Active Substance: PEMBROLIZUMAB
     Route: 041
     Dates: start: 20210402, end: 20210402
  6. QUAVONLIMAB. [Suspect]
     Active Substance: QUAVONLIMAB
     Indication: MALIGNANT MELANOMA
     Route: 041
     Dates: start: 20200904, end: 20210108
  7. QUAVONLIMAB. [Suspect]
     Active Substance: QUAVONLIMAB
     Route: 041
     Dates: start: 20210514
  8. EXFORGE [Concomitant]
     Active Substance: AMLODIPINE BESYLATE\VALSARTAN
     Dates: start: 20200918
  9. QUAVONLIMAB. [Suspect]
     Active Substance: QUAVONLIMAB
     Route: 041
     Dates: start: 20210402, end: 20210402
  10. LEVOTHYROX [Concomitant]
     Active Substance: LEVOTHYROXINE
     Dates: start: 20210219, end: 20210303
  11. QUAVONLIMAB. [Suspect]
     Active Substance: QUAVONLIMAB
     Route: 041
     Dates: start: 20210219, end: 20210219
  12. PEMBROLIZUMAB. [Suspect]
     Active Substance: PEMBROLIZUMAB
     Route: 041
     Dates: start: 20210219, end: 20210219

REACTIONS (1)
  - General physical health deterioration [Recovered/Resolved]

NARRATIVE: CASE EVENT DATE: 20210301
